FAERS Safety Report 12830632 (Version 2)
Quarter: 2017Q2

REPORT INFORMATION
  Report Type: Report from Study
  Country: IT (occurrence: IT)
  Receive Date: 20161007
  Receipt Date: 20170623
  Transmission Date: 20170830
  Serious: Yes (Other)
  Sender: FDA-Public Use
  Company Number: IT-BRISTOL-MYERS SQUIBB COMPANY-BMS-2016-082695

PATIENT
  Age: 70 Year
  Sex: Male

DRUGS (1)
  1. NIVOLUMAB [Suspect]
     Active Substance: NIVOLUMAB
     Indication: NON-SMALL CELL LUNG CANCER
     Dosage: 3 MG/KG, Q2WK
     Route: 042
     Dates: start: 20151222, end: 20161209

REACTIONS (8)
  - Psoriatic arthropathy [Unknown]
  - Oedema peripheral [Unknown]
  - Chest pain [Unknown]
  - Asthenia [Unknown]
  - Pain [Unknown]
  - Cough [Unknown]
  - Gastrointestinal toxicity [Unknown]
  - Arthralgia [Unknown]

NARRATIVE: CASE EVENT DATE: 20160119
